FAERS Safety Report 25503929 (Version 2)
Quarter: 2025Q3

REPORT INFORMATION
  Report Type: Spontaneous
  Country: US (occurrence: US)
  Receive Date: 20250702
  Receipt Date: 20250710
  Transmission Date: 20251020
  Serious: Yes (Other)
  Sender: RADIUS PHARM
  Company Number: US-RADIUS HEALTH INC.-US-RADIUS-25050508

PATIENT
  Age: 77 Year
  Sex: Female

DRUGS (1)
  1. TYMLOS [Suspect]
     Active Substance: ABALOPARATIDE
     Indication: Product used for unknown indication
     Dosage: 80 MICROGRAM, QD
     Route: 058

REACTIONS (8)
  - Lumbar vertebral fracture [Unknown]
  - Fracture [Unknown]
  - Fall [Unknown]
  - Musculoskeletal stiffness [Not Recovered/Not Resolved]
  - Dysstasia [Not Recovered/Not Resolved]
  - Back pain [Unknown]
  - Device use issue [Unknown]
  - Product dose omission issue [Unknown]

NARRATIVE: CASE EVENT DATE: 20241224
